FAERS Safety Report 10745262 (Version 2)
Quarter: 2015Q1

REPORT INFORMATION
  Report Type: Spontaneous
  Country: US (occurrence: US)
  Receive Date: 20150128
  Receipt Date: 20150203
  Transmission Date: 20150721
  Serious: Yes (Hospitalization)
  Sender: FDA-Public Use
  Company Number: US-PFIZER INC-2015034504

PATIENT
  Age: 49 Year
  Sex: Female
  Weight: 91 kg

DRUGS (6)
  1. NEURONTIN [Suspect]
     Active Substance: GABAPENTIN
     Indication: NEUROPATHY PERIPHERAL
     Dosage: 600 MG (300 MG TWO CAPSULES), 3X/DAY
     Dates: start: 2013
  2. LOVENOX [Concomitant]
     Active Substance: ENOXAPARIN SODIUM
     Indication: THROMBOSIS
     Dosage: 100 MG, 2X/DAY (EVERY 12 HOURS)
     Dates: start: 201501
  3. LYRICA [Suspect]
     Active Substance: PREGABALIN
     Indication: FIBROMYALGIA
     Dosage: UNK UNK, 2X/DAY (150)
     Dates: start: 2013
  4. COUMADIN [Suspect]
     Active Substance: WARFARIN SODIUM
     Indication: THROMBOSIS
     Dosage: 10 MG, UNK
  5. LYRICA [Suspect]
     Active Substance: PREGABALIN
     Indication: NEUROPATHY PERIPHERAL
  6. LISINOPRIL /HCTZ 20/25 [Concomitant]
     Indication: HYPERTENSION
     Dosage: 1 DF, 2X/DAY
     Route: 048

REACTIONS (4)
  - Thrombosis [Unknown]
  - Cerebrovascular accident [Unknown]
  - Haemorrhage [Unknown]
  - Frustration [Unknown]
